FAERS Safety Report 15789097 (Version 1)
Quarter: 2019Q1

REPORT INFORMATION
  Report Type: Spontaneous
  Country: US (occurrence: US)
  Receive Date: 20190103
  Receipt Date: 20190103
  Transmission Date: 20190417
  Serious: Yes (Disabling)
  Sender: FDA-Public Use
  Company Number: None

PATIENT
  Age: 37 Year
  Sex: Female
  Weight: 81 kg

DRUGS (5)
  1. BOTOX [Concomitant]
     Active Substance: ONABOTULINUMTOXINA
  2. AIMOVIG [Suspect]
     Active Substance: ERENUMAB-AOOE
     Indication: MIGRAINE
     Dosage: ?          QUANTITY:1 INJECTION(S);OTHER FREQUENCY:MONTHLY;?
     Route: 058
     Dates: start: 20180917, end: 20181221
  3. SUMATRIPTAN. [Concomitant]
     Active Substance: SUMATRIPTAN
  4. TYLENOL [Concomitant]
     Active Substance: ACETAMINOPHEN
  5. IBUPROFEN. [Concomitant]
     Active Substance: IBUPROFEN

REACTIONS (23)
  - Hypertension [None]
  - Thyroid disorder [None]
  - Constipation [None]
  - Insomnia [None]
  - Depression [None]
  - Restless legs syndrome [None]
  - Anxiety [None]
  - Loss of consciousness [None]
  - Dysgeusia [None]
  - Dry eye [None]
  - Premenstrual syndrome [None]
  - Nausea [None]
  - Eczema [None]
  - Decreased appetite [None]
  - Eye pruritus [None]
  - Emotional disorder [None]
  - Fatigue [None]
  - Dizziness [None]
  - Alopecia [None]
  - Myalgia [None]
  - Rash [None]
  - Oral herpes [None]
  - Crying [None]

NARRATIVE: CASE EVENT DATE: 20181225
